FAERS Safety Report 7193051-8 (Version None)
Quarter: 2010Q4

REPORT INFORMATION
  Report Type: 
  Country: None (occurrence: None)
  Receive Date: 20101221
  Receipt Date: 20101221
  Transmission Date: 20110411
  Serious: Yes (Other)
  Sender: FDA-Public Use
  Company Number: None

PATIENT
  Age: 9 Year
  Sex: Male
  Weight: 24 kg

DRUGS (1)
  1. DENOSUMAG 1 MG/ML AMGEN [Suspect]
     Indication: FIBROUS DYSPLASIA OF BONE
     Dosage: 24 MG MONTHLY SQ
     Route: 058
     Dates: start: 20101208, end: 20101208

REACTIONS (1)
  - HYPOPHOSPHATAEMIA [None]
